FAERS Safety Report 4878095-0 (Version None)
Quarter: 2006Q1

REPORT INFORMATION
  Report Type: 
  Country: None (occurrence: None)
  Receive Date: 20060110
  Receipt Date: 20051229
  Transmission Date: 20060701
  Serious: Yes (Hospitalization, Other)
  Sender: FDA-Public Use
  Company Number: HQWYE165003JAN06

PATIENT
  Age: 31 Year
  Sex: Male

DRUGS (2)
  1. ADVIL [Suspect]
     Indication: PYREXIA
     Dosage: 800 MG 1X PER 1 DAY ORAL
     Route: 048
     Dates: start: 20051103, end: 20051111
  2. AUGMENTIN '125' [Suspect]
     Indication: DYSPHAGIA
     Dosage: 3 G 1X PER 1 DAY
     Dates: start: 20051103, end: 20051111

REACTIONS (6)
  - CONDITION AGGRAVATED [None]
  - DRUG TOXICITY [None]
  - PANCYTOPENIA [None]
  - PURPURA [None]
  - RASH MACULO-PAPULAR [None]
  - RASH PRURITIC [None]
